FAERS Safety Report 10874584 (Version 5)
Quarter: 2015Q2

REPORT INFORMATION
  Report Type: Spontaneous
  Country: US (occurrence: US)
  Receive Date: 20150227
  Receipt Date: 20150528
  Transmission Date: 20150821
  Serious: Yes (Death, Hospitalization, Other)
  Sender: FDA-Public Use
  Company Number: US-MERCK-1502USA011772

PATIENT
  Sex: Male
  Weight: 113.3 kg

DRUGS (2)
  1. JANUVIA [Suspect]
     Active Substance: SITAGLIPTIN PHOSPHATE
     Indication: TYPE 2 DIABETES MELLITUS
     Dosage: 50 MG, QD
     Route: 048
     Dates: start: 20071229, end: 20090129
  2. BYETTA [Suspect]
     Active Substance: EXENATIDE
     Indication: TYPE 2 DIABETES MELLITUS
     Dosage: UNK
     Dates: start: 200705, end: 200712

REACTIONS (47)
  - Gastrointestinal erosion [Unknown]
  - Sleep apnoea syndrome [Unknown]
  - Prostatomegaly [Unknown]
  - Gastrointestinal disorder [Unknown]
  - Depression [Unknown]
  - Nephrolithiasis [Unknown]
  - Pancreatitis relapsing [Unknown]
  - Chronic kidney disease [Not Recovered/Not Resolved]
  - Renal cyst [Unknown]
  - Iron deficiency anaemia [Not Recovered/Not Resolved]
  - Insulin-requiring type 2 diabetes mellitus [Unknown]
  - Gastritis [Unknown]
  - Partial seizures [Unknown]
  - Pancreatic carcinoma metastatic [Fatal]
  - Melanosis [Unknown]
  - Hiatus hernia [Unknown]
  - Acquired oesophageal web [Unknown]
  - Duodenitis [Unknown]
  - Duodenal ulcer [Unknown]
  - Adrenal adenoma [Unknown]
  - Nephrolithiasis [Unknown]
  - Diverticulum intestinal [Unknown]
  - Helicobacter gastritis [Unknown]
  - Osteoarthritis [Unknown]
  - Hepatic steatosis [Unknown]
  - Vascular dementia [Unknown]
  - Renal mass [Unknown]
  - Muscle hypertrophy [Unknown]
  - Insomnia [Unknown]
  - Adrenal mass [Unknown]
  - Hernia repair [Unknown]
  - Urinary tract infection [Recovered/Resolved]
  - Oedema [Unknown]
  - Pancreatitis [Unknown]
  - Renal atrophy [Unknown]
  - Tonsillectomy [Unknown]
  - Blood triglycerides increased [Unknown]
  - Gastric polyps [Unknown]
  - Neck pain [Unknown]
  - Anxiety [Unknown]
  - Pneumonia [Unknown]
  - Acute kidney injury [Recovering/Resolving]
  - Lung disorder [Unknown]
  - Generalised oedema [Recovering/Resolving]
  - Renal disorder [Unknown]
  - Gout [Unknown]
  - Back pain [Not Recovered/Not Resolved]

NARRATIVE: CASE EVENT DATE: 20080130
